FAERS Safety Report 7743193-0 (Version None)
Quarter: 2011Q3

REPORT INFORMATION
  Report Type: 
  Country: None (occurrence: None)
  Receive Date: 20110912
  Receipt Date: 20110901
  Transmission Date: 20111222
  Serious: Yes (Hospitalization)
  Sender: FDA-Public Use
  Company Number: FR-CELGENEUS-056-C5013-11010506

PATIENT
  Sex: Male
  Weight: 59 kg

DRUGS (26)
  1. DEXAMETHASONE [Suspect]
     Indication: MULTIPLE MYELOMA
     Route: 065
     Dates: start: 20100722
  2. VENTOLIN [Concomitant]
     Route: 055
  3. SODIUM CHLORIDE [Concomitant]
     Route: 048
  4. XANAX [Concomitant]
     Route: 048
  5. CIPROFLOXACIN HCL [Concomitant]
     Route: 048
  6. TRAMADOL HCL [Concomitant]
     Route: 048
  7. IPRATROPIUM BROMIDE [Concomitant]
     Route: 055
  8. SMECTA [Concomitant]
     Route: 048
  9. TIORFAN [Concomitant]
     Route: 048
  10. CALCIPARINE [Concomitant]
     Route: 058
  11. POTASSIUM CHLORIDE [Concomitant]
     Route: 048
  12. LENALIDOMIDE [Suspect]
     Dosage: 15 MILLIGRAM
     Route: 048
     Dates: start: 20101209, end: 20110105
  13. FUROSEMIDE [Concomitant]
     Route: 041
  14. ASPIRIN [Concomitant]
     Route: 048
  15. CALCIUM GLUCONATE [Concomitant]
     Route: 050
  16. DEXAMETHASONE [Suspect]
     Route: 065
     Dates: start: 20101209, end: 20110105
  17. PIPERACILLIN AND TAZOBACTAM [Concomitant]
     Route: 041
  18. COSYNTROPIN [Concomitant]
     Route: 041
  19. VOLUVEN [Concomitant]
     Route: 041
  20. ALLOPURINOL [Concomitant]
     Route: 048
  21. POTASSIUM CHLORIDE [Concomitant]
     Route: 050
  22. LENALIDOMIDE [Suspect]
     Indication: MULTIPLE MYELOMA
     Dosage: 15 MILLIGRAM
     Route: 048
     Dates: start: 20100722
  23. GUTRON [Concomitant]
     Route: 048
  24. FLUCONAZOLE [Concomitant]
     Route: 048
  25. HYDROCORTISONE [Concomitant]
     Route: 041
  26. ACETAMINOPHEN [Concomitant]
     Route: 048

REACTIONS (2)
  - PNEUMONIA [None]
  - GENERAL PHYSICAL HEALTH DETERIORATION [None]
